FAERS Safety Report 20053834 (Version 1)
Quarter: 2021Q4

REPORT INFORMATION
  Report Type: Spontaneous
  Country: US (occurrence: US)
  Receive Date: 20211110
  Receipt Date: 20211110
  Transmission Date: 20220303
  Serious: No
  Sender: FDA-Public Use
  Company Number: US-PERRIGO-21US028558

PATIENT
  Age: 64 Year
  Sex: Male
  Weight: 70.295 kg

DRUGS (8)
  1. FAMOTIDINE [Suspect]
     Active Substance: FAMOTIDINE
     Indication: Prophylaxis
     Dosage: 20 MG, BID
     Route: 048
     Dates: start: 20210620, end: 20210704
  2. AUGMENTIN                          /00756801/ [Concomitant]
     Indication: Pneumonia
     Dosage: UNKNOWN, BID
     Route: 065
     Dates: start: 20210620
  3. GABAPENTIN [Concomitant]
     Active Substance: GABAPENTIN
     Indication: Cough
     Dosage: UNK
     Route: 065
     Dates: start: 2020
  4. CLONAZEPAM [Concomitant]
     Active Substance: CLONAZEPAM
     Indication: Anxiety
     Dosage: UNK
     Route: 065
     Dates: start: 20210620
  5. EXCEDRIN                           /00110301/ [Concomitant]
     Indication: Headache
     Dosage: UNK
     Route: 065
     Dates: start: 202103
  6. DUONEB [Concomitant]
     Active Substance: ALBUTEROL SULFATE\IPRATROPIUM BROMIDE
     Indication: Traumatic lung injury
     Dosage: UNK
     Route: 065
  7. OXYGEN [Concomitant]
     Active Substance: OXYGEN
     Indication: Traumatic lung injury
     Dosage: 1 TO 2 LITERS/MIN
     Route: 055
     Dates: start: 20210620
  8. TRELEGY ELLIPTA [Concomitant]
     Active Substance: FLUTICASONE FUROATE\UMECLIDINIUM BROMIDE\VILANTEROL TRIFENATATE
     Indication: Traumatic lung injury
     Dosage: UNK
     Route: 065

REACTIONS (3)
  - Dyspepsia [Recovered/Resolved]
  - Drug ineffective for unapproved indication [Unknown]
  - Incorrect product administration duration [Recovered/Resolved]

NARRATIVE: CASE EVENT DATE: 20210620
